FAERS Safety Report 6966963-5 (Version None)
Quarter: 2010Q3

REPORT INFORMATION
  Report Type: 
  Country: None (occurrence: None)
  Receive Date: 20100906
  Receipt Date: 20100823
  Transmission Date: 20110219
  Serious: Yes (Other)
  Sender: FDA-Public Use
  Company Number: FR-ELI_LILLY_AND_COMPANY-FR201008007186

PATIENT
  Sex: Female

DRUGS (3)
  1. GEMCITABINE HCL [Suspect]
     Indication: LEIOMYOSARCOMA
     Dosage: 900 MG/M2, ON DAY 1 AND 8, EVERY 21 DAYS
     Route: 065
  2. DOCETAXEL [Concomitant]
     Indication: LEIOMYOSARCOMA
     Dosage: 100 MG/M2, ON DAY 9, EVERY 21 DAYS
  3. LENOGRASTIM [Concomitant]
     Indication: LEIOMYOSARCOMA
     Dosage: UNK, ON DAYS 9 TO 15, EVERY 21 DAYS

REACTIONS (1)
  - ADVERSE EVENT [None]
